FAERS Safety Report 13274697 (Version 2)
Quarter: 2017Q1

REPORT INFORMATION
  Report Type: Spontaneous
  Country: BR (occurrence: BR)
  Receive Date: 20170227
  Receipt Date: 20170303
  Transmission Date: 20170428
  Serious: Yes (Other)
  Sender: FDA-Public Use
  Company Number: BR-ABBVIE-17P-020-1889080-00

PATIENT
  Age: 44 Year
  Sex: Male
  Weight: 78 kg

DRUGS (5)
  1. DEPAKOTE ER [Interacting]
     Active Substance: DIVALPROEX SODIUM
     Dosage: THE TABLET IS DISSOLVED
     Route: 065
     Dates: start: 20170217, end: 20170223
  2. DEPAKOTE ER [Suspect]
     Active Substance: DIVALPROEX SODIUM
     Indication: MIGRAINE
     Dosage: AFTER BREAKFAST
     Route: 048
     Dates: start: 20161108, end: 201701
  3. DEPAKOTE ER [Interacting]
     Active Substance: DIVALPROEX SODIUM
     Dosage: HALF TABLET (FREQUENCY WAS NOT PROVIDED)
     Route: 065
  4. LIPLESS [Interacting]
     Active Substance: CIPROFIBRATE
     Indication: PRODUCT USED FOR UNKNOWN INDICATION
     Route: 065
     Dates: end: 20170223
  5. PROPRANOLOL [Concomitant]
     Active Substance: PROPRANOLOL HYDROCHLORIDE
     Indication: MIGRAINE
     Dosage: 2 TABLETS (1 TABLET IN THE MORNING/ 1 TABLET IN THE AFTERNOON)
     Route: 048
     Dates: end: 20170217

REACTIONS (7)
  - Product quality issue [Unknown]
  - Medication residue present [Not Recovered/Not Resolved]
  - Drug interaction [Unknown]
  - Wrong technique in product usage process [Unknown]
  - Gastritis erosive [Not Recovered/Not Resolved]
  - Migraine [Not Recovered/Not Resolved]
  - Erosive duodenitis [Not Recovered/Not Resolved]

NARRATIVE: CASE EVENT DATE: 201701
